FAERS Safety Report 18450308 (Version 11)
Quarter: 2024Q1

REPORT INFORMATION
  Report Type: Other
  Country: DE (occurrence: None)
  Receive Date: 20201102
  Receipt Date: 20240116
  Transmission Date: 20240410
  Serious: Yes (Other)
  Sender: FDA-Public Use
  Company Number: DE-ROCHE-2393336

PATIENT
  Age: 39 Year
  Sex: Female

DRUGS (4)
  1. OCREVUS [Suspect]
     Active Substance: OCRELIZUMAB
     Indication: Relapsing-remitting multiple sclerosis
     Dosage: SUBSEQUENT DOSE ON: 03/SEP/2019?600 MG IN 183 DAYS, 600 MG IN 190 DAYS, 600 MG 184 DAYS
     Route: 042
     Dates: start: 20190820
  2. OCREVUS [Suspect]
     Active Substance: OCRELIZUMAB
     Dosage: SUBSEQUENT DOSE: 19/AUG/2020
     Route: 042
     Dates: start: 20200221
  3. PNEUMOCOCCAL VACCINE POLYVALENT NOS [Suspect]
     Active Substance: PNEUMOCOCCAL VACCINE POLYVALENT
     Indication: Product used for unknown indication
     Dosage: SECOND DOSE ON: 25/MAY/2020
     Route: 065
     Dates: start: 20200525
  4. CHOLECALCIFEROL [Concomitant]
     Active Substance: CHOLECALCIFEROL
     Indication: Vitamin D deficiency

REACTIONS (14)
  - Borrelia infection [Recovered/Resolved]
  - Headache [Recovered/Resolved]
  - Asthenia [Recovered/Resolved]
  - Nasopharyngitis [Recovered/Resolved]
  - Upper respiratory tract infection [Recovered/Resolved]
  - Dyspnoea [Recovered/Resolved]
  - Lymphadenopathy [Recovering/Resolving]
  - Arthropod bite [Recovered/Resolved]
  - Lichen sclerosus [Recovered/Resolved]
  - Depression [Recovered/Resolved]
  - Coronavirus infection [Recovered/Resolved]
  - Muscle spasticity [Recovering/Resolving]
  - Fatigue [Recovering/Resolving]
  - Joint swelling [Recovering/Resolving]

NARRATIVE: CASE EVENT DATE: 20190820
